FAERS Safety Report 14831685 (Version 1)
Quarter: 2018Q2

REPORT INFORMATION
  Report Type: Spontaneous
  Country: US (occurrence: US)
  Receive Date: 20180410
  Receipt Date: 20180410
  Transmission Date: 20180711
  Serious: No
  Sender: FDA-Public Use
  Company Number: None

PATIENT
  Age: 22 Year
  Sex: Female
  Weight: 67.5 kg

DRUGS (2)
  1. GYNAZOLE-1 [Suspect]
     Active Substance: BUTOCONAZOLE NITRATE
     Indication: FUNGAL INFECTION
     Dosage: ?          QUANTITY:1 APPLICATOR;OTHER FREQUENCY:ONCE;?
     Route: 067
     Dates: start: 20180409, end: 20180409
  2. TUMERIC TEA [Concomitant]

REACTIONS (8)
  - Dizziness [None]
  - Drug ineffective [None]
  - Oropharyngeal pain [None]
  - Nausea [None]
  - Ear discomfort [None]
  - Somnolence [None]
  - Rhinorrhoea [None]
  - Lacrimation increased [None]

NARRATIVE: CASE EVENT DATE: 20180409
